FAERS Safety Report 8429125-0 (Version None)
Quarter: 2012Q2

REPORT INFORMATION
  Report Type: 
  Country: None (occurrence: None)
  Receive Date: 20120612
  Receipt Date: 20120606
  Transmission Date: 20120825
  Serious: No
  Sender: FDA-Public Use
  Company Number: US-PFIZER INC-2012137098

PATIENT
  Sex: Female
  Weight: 59 kg

DRUGS (3)
  1. ZOLOFT [Suspect]
     Indication: ANXIETY
  2. ZOLOFT [Suspect]
     Indication: DEPRESSION
     Dosage: 50 MG, DAILY
     Dates: start: 20030101, end: 20120501
  3. ZOLOFT [Suspect]
     Indication: PANIC ATTACK

REACTIONS (1)
  - DYSKINESIA [None]
